FAERS Safety Report 14329232 (Version 1)
Quarter: 2017Q4

REPORT INFORMATION
  Report Type: Spontaneous
  Country: GB (occurrence: DE)
  Receive Date: 20171227
  Receipt Date: 20171227
  Transmission Date: 20180321
  Serious: Yes (Disabling, Other)
  Sender: FDA-Public Use
  Company Number: DE-FRESENIUS KABI-FK201711319

PATIENT
  Sex: Male

DRUGS (1)
  1. LEVOFLOXACIN (MANUFACTURER UNKNOWN) [Suspect]
     Active Substance: LEVOFLOXACIN
     Indication: BRONCHITIS
     Route: 065

REACTIONS (5)
  - Walking disability [Unknown]
  - Inflammation [Unknown]
  - Pain in extremity [Unknown]
  - Bedridden [Recovered/Resolved]
  - Tendon rupture [Unknown]

NARRATIVE: CASE EVENT DATE: 201503
